FAERS Safety Report 7412291-3 (Version None)
Quarter: 2011Q2

REPORT INFORMATION
  Report Type: 
  Country: None (occurrence: None)
  Receive Date: 20110413
  Receipt Date: 20100727
  Transmission Date: 20111010
  Serious: Yes (Hospitalization)
  Sender: FDA-Public Use
  Company Number: US-JNJFOC-20100800606

PATIENT
  Sex: Male

DRUGS (3)
  1. CHILDREN'S MOTRIN [Suspect]
     Route: 048
  2. CHILDREN'S MOTRIN [Suspect]
     Indication: PYREXIA
     Route: 048
  3. CHILDREN'S TYLENOL PLUS COLD [Suspect]
     Indication: PYREXIA
     Route: 048

REACTIONS (5)
  - PNEUMONIA MYCOPLASMAL [None]
  - RESPIRATORY DISORDER [None]
  - ASTHMA [None]
  - PRODUCT QUALITY ISSUE [None]
  - INFLUENZA VIRUS TEST POSITIVE [None]
